FAERS Safety Report 10194081 (Version 1)
Quarter: 2014Q2

REPORT INFORMATION
  Report Type: Spontaneous
  Country: US (occurrence: US)
  Receive Date: 20140524
  Receipt Date: 20140524
  Transmission Date: 20141212
  Serious: No
  Sender: FDA-Public Use
  Company Number: US-SANOFI-AVENTIS-2013SA056251

PATIENT
  Age: 77 Year
  Sex: Female
  Weight: 91.62 kg

DRUGS (7)
  1. LANTUS SOLOSTAR [Suspect]
     Indication: TYPE 2 DIABETES MELLITUS
     Dosage: DOSE:25 UNIT(S)
     Route: 065
     Dates: start: 200305
  2. SOLOSTAR [Suspect]
     Indication: TYPE 2 DIABETES MELLITUS
     Dates: start: 200305
  3. UNKNOWDRUG [Concomitant]
  4. ALLOPURINOL [Concomitant]
     Indication: BLOOD URIC ACID
     Dates: start: 2012
  5. MICARDIS HCT [Concomitant]
     Indication: DIABETES MELLITUS
  6. JANUVIA [Concomitant]
     Indication: DIABETES MELLITUS
     Dates: start: 201303
  7. ATENOLOL [Concomitant]
     Indication: BLOOD PRESSURE

REACTIONS (1)
  - Visual impairment [Unknown]
